FAERS Safety Report 8987471 (Version 1)
Quarter: 2012Q4

REPORT INFORMATION
  Report Type: 
  Country: LK (occurrence: LK)
  Receive Date: 20121227
  Receipt Date: 20121227
  Transmission Date: 20130627
  Serious: Yes (Hospitalization)
  Sender: FDA-Public Use
  Company Number: LK-PFIZER INC-2012324741

PATIENT
  Age: 37 Year
  Sex: Female

DRUGS (1)
  1. ADRENALINE [Suspect]
     Dosage: UNK

REACTIONS (10)
  - Accidental exposure to product [Unknown]
  - Toxicity to various agents [Unknown]
  - Pain [Unknown]
  - Headache [Unknown]
  - Chest pain [Unknown]
  - Palpitations [Unknown]
  - Dyspnoea [Not Recovered/Not Resolved]
  - Fatigue [Recovered/Resolved]
  - Muscular weakness [Recovered/Resolved]
  - Tremor [Not Recovered/Not Resolved]
